FAERS Safety Report 6353826-1 (Version None)
Quarter: 2009Q3

REPORT INFORMATION
  Report Type: 
  Country: None (occurrence: None)
  Receive Date: 20090912
  Receipt Date: 20090831
  Transmission Date: 20100115
  Serious: Yes (Death, Other)
  Sender: FDA-Public Use
  Company Number: MX-ROCHE-653652

PATIENT
  Sex: Female
  Weight: 56 kg

DRUGS (3)
  1. RIBAVIRIN [Suspect]
     Indication: ANTIVIRAL TREATMENT
     Route: 048
     Dates: start: 20090514, end: 20090712
  2. PEG-INTERFERON ALFA 2A (RO 25-8310) [Suspect]
     Indication: ANTIVIRAL TREATMENT
     Route: 058
     Dates: start: 20090514, end: 20090704
  3. OMEPRAZOL [Concomitant]
     Indication: GASTRITIS
     Dosage: FREQUENCY: 1
     Route: 048
     Dates: start: 20090514, end: 20090709

REACTIONS (4)
  - ACIDOSIS [None]
  - ANAEMIA [None]
  - GASTROINTESTINAL HAEMORRHAGE [None]
  - HYPOGLYCAEMIA [None]
